FAERS Safety Report 6479955-X (Version None)
Quarter: 2009Q4

REPORT INFORMATION
  Report Type: 
  Country: None (occurrence: None)
  Receive Date: 20091208
  Receipt Date: 20091117
  Transmission Date: 20100525
  Serious: Yes (Hospitalization)
  Sender: FDA-Public Use
  Company Number: FR-SANOFI-AVENTIS-2009SA003395

PATIENT
  Age: 93 Year
  Sex: Male

DRUGS (8)
  1. RIFADIN [Suspect]
     Indication: INFECTIVE SPONDYLITIS
     Route: 042
     Dates: start: 20090306, end: 20090327
  2. CLAMOXYL FOR INJECTION [Suspect]
     Route: 042
     Dates: start: 20090306
  3. APROVEL [Concomitant]
     Indication: DRUG USE FOR UNKNOWN INDICATION
  4. ALDACTONE [Concomitant]
     Indication: DRUG USE FOR UNKNOWN INDICATION
  5. LASILIX [Concomitant]
     Indication: DRUG USE FOR UNKNOWN INDICATION
  6. PLAVIX [Concomitant]
     Indication: DRUG USE FOR UNKNOWN INDICATION
     Route: 048
  7. TEMESTA [Concomitant]
     Indication: DRUG USE FOR UNKNOWN INDICATION
  8. SKENAN [Concomitant]
     Indication: DRUG USE FOR UNKNOWN INDICATION

REACTIONS (4)
  - ASTHENIA [None]
  - CARDIAC FAILURE CONGESTIVE [None]
  - JAUNDICE [None]
  - OEDEMA PERIPHERAL [None]
